FAERS Safety Report 14937173 (Version 1)
Quarter: 2018Q2

REPORT INFORMATION
  Report Type: Spontaneous
  Country: GB (occurrence: GB)
  Receive Date: 20180525
  Receipt Date: 20180525
  Transmission Date: 20180711
  Serious: Yes (Other)
  Sender: FDA-Public Use
  Company Number: GB-TEVA-2018-GB-897582

PATIENT
  Age: 77 Year
  Sex: Male

DRUGS (10)
  1. TRAZODONE [Suspect]
     Active Substance: TRAZODONE HYDROCHLORIDE
     Indication: DEMENTIA WITH LEWY BODIES
     Dosage: 200 MILLIGRAM DAILY; TITRATED UP TO 200MG OVER ROUGHLY 4 WEEKS, STARTED ON 50MG
     Route: 048
     Dates: start: 20180314, end: 20180316
  2. SERTRALINE HYDROCHLORIDE. [Concomitant]
     Active Substance: SERTRALINE HYDROCHLORIDE
  3. BRINZOLAMIDE [Concomitant]
     Active Substance: BRINZOLAMIDE
  4. LACTULOSE. [Concomitant]
     Active Substance: LACTULOSE
  5. TRAZODONE [Suspect]
     Active Substance: TRAZODONE HYDROCHLORIDE
     Route: 048
     Dates: start: 20180217
  6. HYLO-FORTE [Concomitant]
     Active Substance: HYALURONATE SODIUM
  7. TIMOLOL. [Concomitant]
     Active Substance: TIMOLOL
  8. LEVOTHYROXINE SODIUM. [Concomitant]
     Active Substance: LEVOTHYROXINE SODIUM
  9. BIMATOPROST. [Concomitant]
     Active Substance: BIMATOPROST
  10. QUETIAPINE. [Concomitant]
     Active Substance: QUETIAPINE

REACTIONS (4)
  - Jaundice [Recovered/Resolved]
  - Hepatic function abnormal [Recovering/Resolving]
  - Liver function test increased [Recovering/Resolving]
  - Somnolence [Unknown]

NARRATIVE: CASE EVENT DATE: 20180314
